FAERS Safety Report 6808274-4 (Version None)
Quarter: 2010Q2

REPORT INFORMATION
  Report Type: 
  Country: None (occurrence: None)
  Receive Date: 20100629
  Receipt Date: 20090508
  Transmission Date: 20101027
  Serious: No
  Sender: FDA-Public Use
  Company Number: US-PFIZER INC-2009162924

PATIENT
  Sex: Female
  Weight: 63.5 kg

DRUGS (5)
  1. XANAX [Suspect]
     Indication: STRESS
     Dosage: 2 MG, 1X/DAY
     Dates: start: 20090101
  2. TRAZODONE [Concomitant]
     Dosage: UNK
  3. WELLBUTRIN [Concomitant]
     Dosage: UNK
  4. AMBIEN [Concomitant]
     Dosage: UNK
  5. LEVOTHYROXINE [Concomitant]
     Dosage: UNK

REACTIONS (1)
  - DRUG INEFFECTIVE [None]
